FAERS Safety Report 6969665-4 (Version None)
Quarter: 2010Q3

REPORT INFORMATION
  Report Type: 
  Country: None (occurrence: None)
  Receive Date: 20100908
  Receipt Date: 20100828
  Transmission Date: 20110219
  Serious: No
  Sender: FDA-Public Use
  Company Number: US-US-EMD SERONO, INC.-234720K09USA

PATIENT
  Sex: Male
  Weight: 100 kg

DRUGS (8)
  1. REBIF [Suspect]
     Indication: MULTIPLE SCLEROSIS
     Route: 058
     Dates: start: 20090108, end: 20100801
  2. FLOMAX [Concomitant]
  3. BYSTOLIC [Concomitant]
  4. BACLOFEN [Concomitant]
  5. MULTI-VITAMIN [Concomitant]
  6. VITAMIN D [Concomitant]
  7. VITAMIN E [Concomitant]
  8. ALEVE (CAPLET) [Concomitant]
     Indication: PREMEDICATION

REACTIONS (3)
  - HEPATIC ENZYME INCREASED [None]
  - HEPATIC STEATOSIS [None]
  - LABORATORY TEST ABNORMAL [None]
